FAERS Safety Report 8953307 (Version 3)
Quarter: 2013Q1

REPORT INFORMATION
  Report Type: Spontaneous
  Country: JP (occurrence: JP)
  Receive Date: 20121206
  Receipt Date: 20130103
  Transmission Date: 20140127
  Serious: Yes (Death)
  Sender: FDA-Public Use
  Company Number: JP-JNJFOC-20121201390

PATIENT
  Sex: Male
  Weight: 64 kg

DRUGS (4)
  1. XARELTO [Suspect]
     Indication: ATRIAL FIBRILLATION
     Route: 048
     Dates: start: 20121115, end: 20121116
  2. XARELTO [Suspect]
     Indication: CEREBROVASCULAR ACCIDENT PROPHYLAXIS
     Route: 048
     Dates: start: 20121115, end: 20121116
  3. OLMETEC [Concomitant]
     Route: 048
     Dates: start: 20121115, end: 20121116
  4. TAKEPRON [Concomitant]
     Route: 048
     Dates: start: 20121115, end: 20121116

REACTIONS (1)
  - Brain stem infarction [Fatal]
